FAERS Safety Report 6159792-6 (Version None)
Quarter: 2009Q2

REPORT INFORMATION
  Report Type: 
  Country: None (occurrence: None)
  Receive Date: 20090420
  Receipt Date: 20090408
  Transmission Date: 20091009
  Serious: Yes (Hospitalization, Other)
  Sender: FDA-Public Use
  Company Number: US-ELI_LILLY_AND_COMPANY-US200902001974

PATIENT
  Sex: Female

DRUGS (6)
  1. CYMBALTA [Suspect]
     Indication: ABDOMINAL PAIN
     Dosage: 20 MG, UNK
     Route: 048
     Dates: start: 20090101, end: 20090103
  2. CYMBALTA [Suspect]
     Dosage: 40 MG, DAILY (1/D)
     Route: 048
     Dates: start: 20090104, end: 20090111
  3. CYMBALTA [Suspect]
     Dosage: 60 MG, DAILY (1/D)
     Route: 048
     Dates: start: 20090112, end: 20090127
  4. NEUROTIN                           /00949202/ [Concomitant]
     Indication: ABDOMINAL PAIN
     Dosage: 200 MG, 3/D
  5. SINGULAIR [Concomitant]
  6. ZYRTEC [Concomitant]

REACTIONS (6)
  - CONVERSION DISORDER [None]
  - DYSPHEMIA [None]
  - GAIT DISTURBANCE [None]
  - TIC [None]
  - TREMOR [None]
  - URINARY TRACT INFECTION [None]
